FAERS Safety Report 16185875 (Version 1)
Quarter: 2019Q2

REPORT INFORMATION
  Report Type: Spontaneous
  Country: GB (occurrence: GB)
  Receive Date: 20190411
  Receipt Date: 20190411
  Transmission Date: 20190711
  Serious: Yes (Other)
  Sender: FDA-Public Use
  Company Number: PHHY2019GB079503

PATIENT
  Age: 77 Year
  Sex: Male
  Weight: 110 kg

DRUGS (4)
  1. CANDESARTAN CILEXETIL. [Suspect]
     Active Substance: CANDESARTAN CILEXETIL
     Indication: PRODUCT USED FOR UNKNOWN INDICATION
     Dosage: 24 MG, QD (16 + 8 MG)
     Route: 065
  2. AMOXICILLIN. [Interacting]
     Active Substance: AMOXICILLIN
     Indication: LUNG INFECTION
     Dosage: 1500 MG, QD
     Route: 048
     Dates: start: 20190305
  3. AMOXICILLIN. [Interacting]
     Active Substance: AMOXICILLIN
     Dosage: 1500 MG, QD
     Route: 048
     Dates: start: 20190312
  4. GANFORT [Concomitant]
     Active Substance: BIMATOPROST\TIMOLOL
     Indication: PRODUCT USED FOR UNKNOWN INDICATION
     Dosage: UNK
     Route: 065

REACTIONS (2)
  - Drug interaction [Unknown]
  - Cough [Recovered/Resolved]

NARRATIVE: CASE EVENT DATE: 20190307
